FAERS Safety Report 9669339 (Version 3)
Quarter: 2013Q4

REPORT INFORMATION
  Report Type: Report from Study
  Country: US (occurrence: US)
  Receive Date: 20131105
  Receipt Date: 20131223
  Transmission Date: 20140711
  Serious: Yes (Hospitalization)
  Sender: FDA-Public Use
  Company Number: US-GILEAD-2013-0086812

PATIENT
  Age: 65 Year
  Sex: Female
  Weight: 160.4 kg

DRUGS (22)
  1. AMBRISENTAN [Suspect]
     Indication: PULMONARY ARTERIAL HYPERTENSION
     Dosage: 5 MG, QD
     Route: 048
     Dates: start: 200803
  2. TREPROSTINIL [Suspect]
     Indication: PULMONARY ARTERIAL HYPERTENSION
     Dosage: 216 ?G, UNK
     Route: 055
     Dates: start: 201010, end: 20130915
  3. REVATIO [Suspect]
     Indication: PULMONARY ARTERIAL HYPERTENSION
     Dosage: 40 MG, TID
     Route: 065
     Dates: start: 200803
  4. ACTOS [Concomitant]
  5. ALPRAZOLAM [Concomitant]
  6. ACETYLSALICYLIC ACID [Concomitant]
  7. COUMADIN                           /00014802/ [Concomitant]
  8. PROCRIT                            /00909301/ [Concomitant]
  9. SLOW FE [Concomitant]
  10. LANTUS [Concomitant]
  11. ACIDOPHILUS [Concomitant]
  12. MIDODRINE [Concomitant]
  13. CENTRUM                            /02217401/ [Concomitant]
  14. OMEPRAZOLE [Concomitant]
  15. PRAVASTATIN [Concomitant]
  16. RENAGEL                            /01459901/ [Concomitant]
  17. SENSIPAR [Concomitant]
  18. FLAXSEED OIL [Concomitant]
  19. FOLIC ACID [Concomitant]
  20. IRON [Concomitant]
  21. VITAMIN D NOS [Concomitant]
  22. FISH OIL [Concomitant]

REACTIONS (1)
  - Hypotension [Recovered/Resolved]
